FAERS Safety Report 5216395-5 (Version None)
Quarter: 2006Q4

REPORT INFORMATION
  Report Type: 
  Country: None (occurrence: None)
  Receive Date: 20061124
  Receipt Date: 20060914
  Transmission Date: 20070319
  Serious: Yes (Hospitalization)
  Sender: FDA-Public Use
  Company Number: WAES 0609USA03669

PATIENT
  Sex: 0

DRUGS (1)
  1. VYTORIN [Suspect]
     Indication: LOW DENSITY LIPOPROTEIN INCREASED
     Dosage: 10-40 MG/DAILY/PO
     Route: 048

REACTIONS (2)
  - GASTROENTERITIS [None]
  - RHABDOMYOLYSIS [None]
